FAERS Safety Report 15602440 (Version 1)
Quarter: 2018Q4

REPORT INFORMATION
  Report Type: Report from Study
  Country: BR (occurrence: BR)
  Receive Date: 20181109
  Receipt Date: 20181109
  Transmission Date: 20190205
  Serious: Yes (Death, Hospitalization)
  Sender: FDA-Public Use
  Company Number: PHHY2018BR148978

PATIENT
  Sex: Male
  Weight: 61 kg

DRUGS (1)
  1. VOTRIENT [Suspect]
     Active Substance: PAZOPANIB HYDROCHLORIDE
     Indication: METASTATIC RENAL CELL CARCINOMA
     Dosage: 800 MG, QD
     Route: 048
     Dates: start: 201807

REACTIONS (10)
  - Pain [Unknown]
  - Malaise [Unknown]
  - Drug ineffective [Unknown]
  - Metastatic renal cell carcinoma [Fatal]
  - Drug hypersensitivity [Unknown]
  - Gait inability [Unknown]
  - Malignant neoplasm progression [Fatal]
  - Dyspnoea [Unknown]
  - Memory impairment [Unknown]
  - Muscular weakness [Unknown]
